FAERS Safety Report 20514560 (Version 2)
Quarter: 2022Q1

REPORT INFORMATION
  Report Type: Spontaneous
  Country: MX (occurrence: MX)
  Receive Date: 20220224
  Receipt Date: 20220308
  Transmission Date: 20220423
  Serious: Yes (Hospitalization, Other)
  Sender: FDA-Public Use
  Company Number: MX-MLMSERVICE-20220214-3372330-1

PATIENT
  Age: 14 Year
  Sex: Male

DRUGS (6)
  1. EPIRUBICIN HYDROCHLORIDE [Suspect]
     Active Substance: EPIRUBICIN HYDROCHLORIDE
     Indication: Osteosarcoma
     Dosage: TEN CYCLES
  2. DEXAMETHASONE [Suspect]
     Active Substance: DEXAMETHASONE
     Indication: Osteosarcoma
     Dosage: UNK
  3. CISPLATIN [Suspect]
     Active Substance: CISPLATIN
     Indication: Osteosarcoma
     Dosage: TEN CYCLES
  4. CYCLOPHOSPHAMIDE [Suspect]
     Active Substance: CYCLOPHOSPHAMIDE
     Indication: Osteosarcoma
     Dosage: TEN CYCLES
  5. PREDNISONE [Suspect]
     Active Substance: PREDNISONE
     Indication: Osteosarcoma
     Dosage: UNK
  6. MESNA [Suspect]
     Active Substance: MESNA
     Indication: Osteosarcoma
     Dosage: UNK

REACTIONS (6)
  - Lymphopenia [Recovered/Resolved]
  - Neutropenia [Recovered/Resolved]
  - Malassezia infection [Recovered/Resolved]
  - Seborrhoeic dermatitis [Recovered/Resolved]
  - Folliculitis [Recovered/Resolved]
  - Immunosuppression [Unknown]
